FAERS Safety Report 16975392 (Version 1)
Quarter: 2019Q4

REPORT INFORMATION
  Report Type: Spontaneous
  Country: US (occurrence: US)
  Receive Date: 20190913
  Receipt Date: 20190913
  Transmission Date: 20200122
  Serious: No
  Sender: FDA-Public Use
  Company Number: None

PATIENT
  Age: 77 Year
  Sex: Female
  Weight: 53.07 kg

DRUGS (2)
  1. FORTEO [Suspect]
     Active Substance: TERIPARATIDE
     Indication: SENILE OSTEOPOROSIS
     Route: 058
     Dates: start: 201811
  2. FORTEO [Suspect]
     Active Substance: TERIPARATIDE
     Indication: SPINAL STENOSIS
     Route: 058
     Dates: start: 201811

REACTIONS (1)
  - Dyspnoea [None]
